FAERS Safety Report 15107234 (Version 2)
Quarter: 2018Q3

REPORT INFORMATION
  Report Type: Spontaneous
  Country: US (occurrence: US)
  Receive Date: 20180704
  Receipt Date: 20180906
  Transmission Date: 20181010
  Serious: No
  Sender: FDA-Public Use
  Company Number: US-PFIZER INC-2018268817

PATIENT
  Age: 76 Year
  Sex: Female
  Weight: 55.79 kg

DRUGS (2)
  1. PREMARIN [Suspect]
     Active Substance: ESTROGENS, CONJUGATED
     Indication: DERMATITIS CONTACT
  2. PREMARIN [Suspect]
     Active Substance: ESTROGENS, CONJUGATED
     Indication: PERINEAL DISORDER
     Dosage: UNK, WEEKLY (1 APPLICATION VAGINALLY ONCE A WEEK / ONCE WEEKLY IN SMALL AMOUNT)
     Route: 067

REACTIONS (3)
  - Suspected counterfeit product [Unknown]
  - Drug effective for unapproved indication [Unknown]
  - Counterfeit product administered [Unknown]

NARRATIVE: CASE EVENT DATE: 201806
